FAERS Safety Report 9885331 (Version 1)
Quarter: 2014Q1

REPORT INFORMATION
  Report Type: Spontaneous
  Country: US (occurrence: US)
  Receive Date: 20140210
  Receipt Date: 20140210
  Transmission Date: 20141002
  Serious: No
  Sender: FDA-Public Use
  Company Number: US-BAYER-2014-012446

PATIENT
  Sex: Female

DRUGS (1)
  1. FINACEA [Suspect]
     Indication: RASH MACULAR
     Dosage: UNK UNK, BID
     Dates: start: 20140114, end: 20140118

REACTIONS (4)
  - Erythema [Not Recovered/Not Resolved]
  - Application site reaction [Not Recovered/Not Resolved]
  - Facial pain [Not Recovered/Not Resolved]
  - Pruritus [Not Recovered/Not Resolved]
